FAERS Safety Report 7131530-X (Version None)
Quarter: 2010Q4

REPORT INFORMATION
  Report Type: 
  Country: None (occurrence: None)
  Receive Date: 20101201
  Receipt Date: 20101019
  Transmission Date: 20110411
  Serious: Yes (Death, Life-Threatening, Other)
  Sender: FDA-Public Use
  Company Number: US-BAXTER-2010BH014492

PATIENT
  Age: 71 Year
  Sex: Female

DRUGS (33)
  1. HEPARIN SODIUM INJECTION [Suspect]
     Indication: PRODUCT USED FOR UNKNOWN INDICATION
     Route: 058
     Dates: start: 20071102, end: 20071103
  2. HEPARIN SODIUM INJECTION [Suspect]
     Route: 058
     Dates: start: 20071115, end: 20071116
  3. HEPARIN SODIUM INJECTION [Suspect]
     Route: 058
     Dates: start: 20070928, end: 20071004
  4. HEPARIN SODIUM INJECTION [Suspect]
     Route: 058
     Dates: start: 20071011, end: 20071011
  5. HEPARIN SODIUM INJECTION [Suspect]
     Route: 058
     Dates: start: 20071028, end: 20071029
  6. HEPARIN SODIUM INJECTION [Suspect]
     Route: 058
     Dates: start: 20071101, end: 20071103
  7. HEPARIN SODIUM INJECTION [Suspect]
     Route: 058
     Dates: start: 20071115, end: 20071116
  8. TAXOL [Concomitant]
     Indication: PRODUCT USED FOR UNKNOWN INDICATION
     Route: 065
  9. GEMZAR [Concomitant]
     Indication: PRODUCT USED FOR UNKNOWN INDICATION
     Route: 065
  10. CARBOPLATIN [Concomitant]
     Indication: PRODUCT USED FOR UNKNOWN INDICATION
     Route: 065
  11. LEVAQUIN [Concomitant]
     Indication: PRODUCT USED FOR UNKNOWN INDICATION
     Route: 065
  12. POTASSIUM CHLORIDE [Concomitant]
     Indication: PRODUCT USED FOR UNKNOWN INDICATION
     Route: 065
  13. MONOPRIL [Concomitant]
     Indication: PRODUCT USED FOR UNKNOWN INDICATION
     Route: 065
  14. FUROSEMIDE [Concomitant]
     Indication: PRODUCT USED FOR UNKNOWN INDICATION
     Route: 065
  15. LIDOCAINE HYDROCHLORIDE IN PLASTIC CONTAINER [Concomitant]
     Indication: CHEMOTHERAPY
     Route: 065
  16. TERAZOSIN HYDROCHLORIDE [Concomitant]
     Indication: PRODUCT USED FOR UNKNOWN INDICATION
     Route: 065
  17. PREVACID [Concomitant]
     Indication: PRODUCT USED FOR UNKNOWN INDICATION
     Route: 065
  18. PROMETHAZINE [Concomitant]
     Indication: PRODUCT USED FOR UNKNOWN INDICATION
     Route: 065
  19. NORMAL SALINE [Concomitant]
     Indication: PRODUCT USED FOR UNKNOWN INDICATION
     Route: 042
  20. MORPHINE [Concomitant]
     Indication: PRODUCT USED FOR UNKNOWN INDICATION
     Route: 065
  21. ZOFRAN [Concomitant]
     Indication: PRODUCT USED FOR UNKNOWN INDICATION
     Route: 065
  22. PHENERGAN [Concomitant]
     Indication: PRODUCT USED FOR UNKNOWN INDICATION
     Route: 065
  23. PHENERGAN [Concomitant]
     Route: 065
  24. TAZICEF [Concomitant]
     Indication: PRODUCT USED FOR UNKNOWN INDICATION
     Route: 065
  25. PANTOPRAZOLE [Concomitant]
     Indication: PRODUCT USED FOR UNKNOWN INDICATION
     Route: 065
  26. DOPAMINE [Concomitant]
     Indication: PRODUCT USED FOR UNKNOWN INDICATION
     Route: 065
  27. SODIUM BICARBONATE [Concomitant]
     Indication: PRODUCT USED FOR UNKNOWN INDICATION
     Route: 065
  28. SODIUM BICARBONATE [Concomitant]
     Route: 065
  29. CIPROFLOXACIN [Concomitant]
     Indication: PRODUCT USED FOR UNKNOWN INDICATION
     Route: 065
  30. NARCAN [Concomitant]
     Indication: PRODUCT USED FOR UNKNOWN INDICATION
     Route: 065
  31. FLAGYL [Concomitant]
     Indication: PRODUCT USED FOR UNKNOWN INDICATION
     Route: 042
  32. FOSINOPRIL SODIUM [Concomitant]
     Indication: PRODUCT USED FOR UNKNOWN INDICATION
     Route: 065
  33. PARAPLATIN [Concomitant]
     Indication: PRODUCT USED FOR UNKNOWN INDICATION
     Route: 065

REACTIONS (33)
  - ABDOMINAL DISTENSION [None]
  - ABDOMINAL PAIN UPPER [None]
  - ACIDOSIS [None]
  - ANAEMIA [None]
  - ANGIOPATHY [None]
  - CHILLS [None]
  - CHRONIC LYMPHOCYTIC LEUKAEMIA [None]
  - COLD SWEAT [None]
  - CONFUSIONAL STATE [None]
  - DEHYDRATION [None]
  - DIARRHOEA HAEMORRHAGIC [None]
  - DIZZINESS [None]
  - HAEMATEMESIS [None]
  - HEADACHE [None]
  - HEPATIC INFARCTION [None]
  - HYPERTENSIVE NEPHROPATHY [None]
  - HYPOTENSION [None]
  - INFARCTION [None]
  - INTESTINAL INFARCTION [None]
  - LETHARGY [None]
  - LOSS OF CONSCIOUSNESS [None]
  - MESENTERIC VASCULAR INSUFFICIENCY [None]
  - METABOLIC ACIDOSIS [None]
  - NAUSEA [None]
  - OBSTRUCTIVE AIRWAYS DISORDER [None]
  - SEPSIS [None]
  - SPLEEN DISORDER [None]
  - SPLENIC INFARCTION [None]
  - SWELLING [None]
  - SWELLING FACE [None]
  - SYSTEMIC LUPUS ERYTHEMATOSUS [None]
  - UNRESPONSIVE TO STIMULI [None]
  - VOMITING [None]
